FAERS Safety Report 7165008-4 (Version None)
Quarter: 2010Q4

REPORT INFORMATION
  Report Type: 
  Country: None (occurrence: None)
  Receive Date: 20101215
  Receipt Date: 20091215
  Transmission Date: 20110411
  Serious: No
  Sender: FDA-Public Use
  Company Number: US-AMGEN-TCS380647

PATIENT

DRUGS (3)
  1. ENBREL [Suspect]
     Indication: RHEUMATOID ARTHRITIS
     Dosage: 50 MG, QWK
     Route: 058
     Dates: start: 20070401
  2. ENBREL [Suspect]
     Indication: PSORIASIS
  3. HYDROXYCHLOROQUINE SULFATE [Concomitant]
     Dosage: 200 MG, BID
     Route: 048
     Dates: start: 20070401

REACTIONS (1)
  - PSORIASIS [None]
